FAERS Safety Report 5304394-4 (Version None)
Quarter: 2007Q2

REPORT INFORMATION
  Report Type: 
  Country: None (occurrence: None)
  Receive Date: 20070423
  Receipt Date: 20070321
  Transmission Date: 20071010
  Serious: No
  Sender: FDA-Public Use
  Company Number: IT-AVENTIS-200712899GDDC

PATIENT
  Age: 38 Year
  Sex: Male

DRUGS (1)
  1. ARAVA [Suspect]
     Indication: PSORIATIC ARTHROPATHY

REACTIONS (2)
  - PREGNANCY OF PARTNER [None]
  - TRANSMISSION OF DRUG VIA SEMEN [None]
